FAERS Safety Report 9057350 (Version 1)
Quarter: 2013Q1

REPORT INFORMATION
  Report Type: Spontaneous
  Country: US (occurrence: US)
  Receive Date: 20130204
  Receipt Date: 20130204
  Transmission Date: 20140127
  Serious: Yes (Hospitalization, Other)
  Sender: FDA-Public Use
  Company Number: PHHY2012US002359

PATIENT
  Age: 18 Year
  Sex: Female

DRUGS (10)
  1. TACROLIMUS [Suspect]
     Indication: IMMUNOSUPPRESSION
     Dosage: 6 MG
  2. TACROLIMUS [Interacting]
     Dosage: 4 MG, UNK
  3. ESOMEPRAZOLE [Interacting]
     Dosage: 40 MG
  4. OMEPRAZOLE [Interacting]
     Dosage: 40 MG
  5. PREDNISONE [Concomitant]
  6. SULFAMETHOXAZOLE/TRIMETHOPRIM [Concomitant]
  7. VALGANCICLOVIR [Concomitant]
  8. CARVEDILOL [Concomitant]
  9. MYCOPHENOLATE MOFETIL [Concomitant]
     Indication: IMMUNOSUPPRESSION
  10. LANSOPRAZOLE [Concomitant]
     Dosage: 30 MG

REACTIONS (7)
  - Blood creatinine increased [Recovered/Resolved]
  - Immunosuppressant drug level increased [Recovered/Resolved]
  - Sinusitis [Recovered/Resolved]
  - Drug interaction [Unknown]
  - Fatigue [Recovered/Resolved]
  - Nausea [Recovered/Resolved]
  - Vomiting [Recovered/Resolved]
